FAERS Safety Report 5919236-3 (Version None)
Quarter: 2008Q3

REPORT INFORMATION
  Report Type: 
  Country: None (occurrence: None)
  Receive Date: 20080909
  Receipt Date: 20070316
  Transmission Date: 20090109
  Serious: Yes (Hospitalization)
  Sender: FDA-Public Use
  Company Number: 163-20785-07031005

PATIENT
  Age: 52 Year
  Sex: Male

DRUGS (17)
  1. THALOMID [Suspect]
     Indication: MULTIPLE MYELOMA
     Dosage: 100-200MG, ORAL ; 150-250MG, ORAL
     Route: 048
     Dates: start: 20010814, end: 20020528
  2. THALOMID [Suspect]
     Indication: MULTIPLE MYELOMA
     Dosage: 100-200MG, ORAL ; 150-250MG, ORAL
     Route: 048
     Dates: start: 20020528
  3. PREDNISONE [Suspect]
     Indication: MULTIPLE MYELOMA
     Dosage: 25 MG, QOD
     Dates: start: 20020528
  4. VITAMIN B12 [Concomitant]
  5. PROCRIT [Concomitant]
  6. AREDIA [Suspect]
  7. PROTONIX [Concomitant]
  8. MINOXIDIL [Concomitant]
  9. ALDACTONE [Concomitant]
  10. TENORMIN [Concomitant]
  11. POTASSIUM (POTASSIUM) [Concomitant]
  12. LASIX [Concomitant]
  13. MAGNESIUM (MAGNESIUM) [Concomitant]
  14. ASCRIPTIN (ASCRIPTIN) [Concomitant]
  15. OXYCONTIN [Concomitant]
  16. VICODIN [Concomitant]
  17. COUMADIN [Concomitant]

REACTIONS (4)
  - DEHYDRATION [None]
  - DIARRHOEA [None]
  - GASTRITIS [None]
  - VOMITING [None]
